FAERS Safety Report 11574438 (Version 1)
Quarter: 2015Q3

REPORT INFORMATION
  Report Type: Spontaneous
  Country: US (occurrence: None)
  Receive Date: 20150928
  Receipt Date: 20150928
  Transmission Date: 20151125
  Serious: Yes (Hospitalization)
  Sender: FDA-Public Use
  Company Number: None

PATIENT
  Age: 60 Year
  Sex: Female

DRUGS (17)
  1. DICYCLOMINE [Concomitant]
     Active Substance: DICYCLOMINE HYDROCHLORIDE
  2. ESTRACE [Suspect]
     Active Substance: ESTRADIOL
     Indication: PRODUCT USED FOR UNKNOWN INDICATION
     Dosage: 42.5?ONCE DAILY?VAGINALLY
     Route: 067
     Dates: start: 20150203, end: 20150729
  3. ALBUTEROL. [Concomitant]
     Active Substance: ALBUTEROL
  4. CALCIUM W/VITAMIN D [Concomitant]
     Active Substance: CALCIUM\VITAMIN D
  5. AMLODIPINE [Concomitant]
     Active Substance: AMLODIPINE BESYLATE
  6. ZETIA [Concomitant]
     Active Substance: EZETIMIBE
  7. DOCUSATE SODIUM. [Concomitant]
     Active Substance: DOCUSATE SODIUM
  8. FLEET ENEMA RECT [Concomitant]
  9. CLA [Concomitant]
  10. IRON-TEK [Concomitant]
  11. TIZANIDINE. [Concomitant]
     Active Substance: TIZANIDINE
  12. WARFARIN [Concomitant]
     Active Substance: WARFARIN
  13. EZETIMBLE [Concomitant]
  14. FLUOXETINE [Concomitant]
     Active Substance: FLUOXETINE\FLUOXETINE HYDROCHLORIDE
  15. TRIAMCINOLONE [Concomitant]
     Active Substance: TRIAMCINOLONE
  16. TRAZANIDINE [Concomitant]
  17. BENTYL [Concomitant]
     Active Substance: DICYCLOMINE HYDROCHLORIDE

REACTIONS (3)
  - Gastric disorder [None]
  - Fear [None]
  - Thrombosis [None]

NARRATIVE: CASE EVENT DATE: 20150729
